FAERS Safety Report 5348838-0 (Version None)
Quarter: 2007Q2

REPORT INFORMATION
  Report Type: 
  Country: None (occurrence: None)
  Receive Date: 20070605
  Receipt Date: 20070525
  Transmission Date: 20071010
  Serious: Yes (Other)
  Sender: FDA-Public Use
  Company Number: CHNY2007JP02013

PATIENT
  Age: 57 Year
  Sex: Male

DRUGS (1)
  1. NICOTINE [Suspect]
     Indication: NICOTINE DEPENDENCE
     Dosage: 21 MG, QD, TRANSDERMAL
     Route: 062
     Dates: start: 20070512, end: 20070512

REACTIONS (2)
  - DISCOMFORT [None]
  - DYSPNOEA [None]
